FAERS Safety Report 22344349 (Version 4)
Quarter: 2024Q1

REPORT INFORMATION
  Report Type: Spontaneous
  Country: US (occurrence: US)
  Receive Date: 20230519
  Receipt Date: 20240314
  Transmission Date: 20240409
  Serious: Yes (Other)
  Sender: FDA-Public Use
  Company Number: US-PFIZER INC-PV202300080879

PATIENT
  Age: 77 Year
  Sex: Female

DRUGS (1)
  1. IBRANCE [Suspect]
     Active Substance: PALBOCICLIB
     Indication: Breast cancer metastatic
     Dosage: TAKE 100 MG ON DAYS 1-21 OF 28 DAY CYCLE

REACTIONS (2)
  - Drug dependence [Unknown]
  - Confusional state [Unknown]

NARRATIVE: CASE EVENT DATE: 20240312
